FAERS Safety Report 24849764 (Version 1)
Quarter: 2025Q1

REPORT INFORMATION
  Report Type: Spontaneous
  Country: US (occurrence: None)
  Receive Date: 20250115
  Receipt Date: 20250115
  Transmission Date: 20250409
  Serious: No
  Sender: FDA-CTU
  Company Number: None

PATIENT
  Age: 5 Month
  Sex: Male
  Weight: 8.82 kg

DRUGS (3)
  1. BEYFORTUS [Suspect]
     Active Substance: NIRSEVIMAB-ALIP
     Indication: Prophylaxis
     Route: 030
  2. BEYFORTUS [Concomitant]
     Active Substance: NIRSEVIMAB-ALIP
     Dates: start: 20241021, end: 20241021
  3. BEYFORTUS [Concomitant]
     Active Substance: NIRSEVIMAB-ALIP
     Dates: start: 20250113, end: 20250113

REACTIONS (2)
  - Extra dose administered [None]
  - Wrong technique in product usage process [None]

NARRATIVE: CASE EVENT DATE: 20250113
